FAERS Safety Report 17122981 (Version 1)
Quarter: 2019Q4

REPORT INFORMATION
  Report Type: Spontaneous
  Country: US (occurrence: US)
  Receive Date: 20191206
  Receipt Date: 20191206
  Transmission Date: 20200122
  Serious: No
  Sender: FDA-Public Use
  Company Number: US-ROCHE-2175724

PATIENT
  Sex: Female

DRUGS (6)
  1. PEPCIDIN [Concomitant]
     Route: 065
  2. BENADRYL [Concomitant]
     Active Substance: DIPHENHYDRAMINE HYDROCHLORIDE
  3. OCREVUS [Suspect]
     Active Substance: OCRELIZUMAB
     Indication: RELAPSING MULTIPLE SCLEROSIS
     Dosage: RECEIVED OCRELIZUMAB ON 21/AUG/2019
     Route: 065
     Dates: start: 20170802
  4. DIPHENHYDRAMINE. [Concomitant]
     Active Substance: DIPHENHYDRAMINE
     Route: 042
  5. METHYLPREDNISOLONE. [Concomitant]
     Active Substance: METHYLPREDNISOLONE
     Route: 065
  6. TYLENOL [Concomitant]
     Active Substance: ACETAMINOPHEN
     Route: 065

REACTIONS (5)
  - Throat irritation [Recovered/Resolved]
  - Cough [Recovered/Resolved]
  - Eye pruritus [Recovered/Resolved]
  - Throat tightness [Not Recovered/Not Resolved]
  - Rash macular [Recovered/Resolved]
